FAERS Safety Report 10926256 (Version 2)
Quarter: 2015Q2

REPORT INFORMATION
  Report Type: Spontaneous
  Country: US (occurrence: US)
  Receive Date: 20150318
  Receipt Date: 20150619
  Transmission Date: 20150821
  Serious: Yes (Hospitalization, Other)
  Sender: FDA-Public Use
  Company Number: US-009507513-1110USA03278

PATIENT
  Sex: Female
  Weight: 65.76 kg

DRUGS (3)
  1. FOSAMAX [Suspect]
     Active Substance: ALENDRONATE SODIUM
     Indication: BONE DENSITY DECREASED
     Dosage: 70 MG, QW
     Route: 048
     Dates: start: 20021205, end: 20061229
  2. ALENDRONATE SODIUM. [Suspect]
     Active Substance: ALENDRONATE SODIUM
     Indication: BONE DENSITY DECREASED
     Dosage: 70 MG, QW
     Route: 048
     Dates: start: 20090116, end: 20091218
  3. FOSAMAX PLUS D [Suspect]
     Active Substance: ALENDRONATE SODIUM\CHOLECALCIFEROL
     Indication: BONE DENSITY DECREASED
     Dosage: 70-2800 MG QW
     Route: 048
     Dates: start: 20070330, end: 20080927

REACTIONS (23)
  - Anxiety disorder [Unknown]
  - Tympanoplasty [Unknown]
  - Rhinitis [Not Recovered/Not Resolved]
  - Depression [Unknown]
  - Gastrooesophageal reflux disease [Unknown]
  - Haemorrhagic anaemia [Recovered/Resolved]
  - Temporomandibular joint syndrome [Unknown]
  - Femur fracture [Unknown]
  - Ureteral stent removal [Unknown]
  - Hyperlipidaemia [Unknown]
  - Osteoporosis [Unknown]
  - Intervertebral disc degeneration [Unknown]
  - Transient ischaemic attack [Unknown]
  - Femur fracture [Unknown]
  - Deafness neurosensory [Unknown]
  - Rheumatoid arthritis [Unknown]
  - Bone cyst [Unknown]
  - Leukocytosis [Unknown]
  - Renal stone removal [Unknown]
  - Osteoarthritis [Unknown]
  - Muscle spasms [Unknown]
  - Intramedullary rod insertion [Unknown]
  - Urinary tract infection [Unknown]

NARRATIVE: CASE EVENT DATE: 2002
